FAERS Safety Report 8822279 (Version 2)
Quarter: 2012Q4

REPORT INFORMATION
  Report Type: 
  Country: JP (occurrence: JP)
  Receive Date: 20121003
  Receipt Date: 20121011
  Transmission Date: 20130627
  Serious: Yes (Other)
  Sender: FDA-Public Use
  Company Number: PHHY2012JP085278

PATIENT
  Age: 67 Year
  Sex: Male

DRUGS (2)
  1. CICLOSPORIN [Suspect]
     Indication: PSORIASIS
     Route: 048
  2. ETRETINATE [Concomitant]
     Indication: PSORIASIS
     Route: 048

REACTIONS (1)
  - Renal impairment [Unknown]
